FAERS Safety Report 14930719 (Version 2)
Quarter: 2018Q3

REPORT INFORMATION
  Report Type: Other
  Country: US (occurrence: US)
  Receive Date: 20180523
  Receipt Date: 20180816
  Transmission Date: 20181010
  Serious: No
  Sender: FDA-Public Use
  Company Number: US-GREER LABORATORIES, INC.-2048343

PATIENT
  Age: 50 Year
  Sex: Female

DRUGS (31)
  1. ALTERNARIA ALTERNATA. [Concomitant]
     Active Substance: ALTERNARIA ALTERNATA
     Route: 023
  2. CLADOSPORIUM HERBARUM. [Concomitant]
     Active Substance: CLADOSPORIUM HERBARUM
     Route: 023
  3. POLLENS ? TREES, CEDAR, MOUNTAIN JUNIPERUS ASHEI [Concomitant]
     Active Substance: JUNIPERUS ASHEI POLLEN
     Route: 023
  4. ASPERGILLUS FUMIGATUS. [Concomitant]
     Active Substance: ASPERGILLUS FUMIGATUS
     Route: 023
  5. 7 GRASS MIX [Suspect]
     Active Substance: AGROSTIS GIGANTEA POLLEN\ANTHOXANTHUM ODORATUM\DACTYLIS GLOMERATA\FESTUCA PRATENSIS\LOLIUM PERENNE\PHLEUM PRATENSE\POA PRATENSIS
     Route: 023
  6. ZYRTEC [Concomitant]
     Active Substance: CETIRIZINE HYDROCHLORIDE
     Route: 048
     Dates: start: 20140908, end: 20161226
  7. TALCONEX [Concomitant]
     Route: 061
     Dates: start: 201409
  8. ALLERGENIC EXTRACT? MITE, DERMATOPHAGOIDES FARINAE [Suspect]
     Active Substance: DERMATOPHAGOIDES FARINAE
     Indication: ALLERGY TEST
     Route: 050
  9. EASTERN COTTONWOOD [Suspect]
     Active Substance: POPULUS DELTOIDES POLLEN
     Route: 023
  10. BIRCH MIX [Concomitant]
     Active Substance: BETULA NIGRA POLLEN\BETULA POPULIFOLIA POLLEN
     Route: 023
  11. ALEVE [Concomitant]
     Active Substance: NAPROXEN SODIUM
     Route: 048
     Dates: start: 200104
  12. STANDARDIZED MITE, DERMATOPHAGOIDES PTERONYSSINUS [Suspect]
     Active Substance: DERMATOPHAGOIDES PTERONYSSINUS
     Route: 023
  13. POLLENS ? TREES, SYCAMORE, AMERICAN (EASTERN) PLATANUS OCCIDENTALLIS [Concomitant]
     Active Substance: PLATANUS OCCIDENTALIS POLLEN
     Route: 023
  14. COMMON WEED MIX [Concomitant]
     Route: 023
  15. INSECTS (WHOLE BODY) COCKROACH MIX [Concomitant]
     Active Substance: BLATELLA GERMANICA\PERIPLANETA AMERICANA
     Route: 023
  16. JOHNSON GRASS [Concomitant]
     Active Substance: SORGHUM HALEPENSE POLLEN
     Route: 023
  17. POLLENS ? TREES, ELM, AMERICAN ULMUS AMERICANA [Concomitant]
     Active Substance: ULMUS AMERICANA POLLEN
     Route: 023
  18. ASH MIX [Concomitant]
     Route: 023
  19. BOX ELDER [Concomitant]
     Active Substance: ACER NEGUNDO POLLEN
     Route: 023
  20. SHORT/GIANT RAGWEED MIXTURE [Suspect]
     Active Substance: AMBROSIA ARTEMISIIFOLIA POLLEN\AMBROSIA TRIFIDA POLLEN
     Route: 023
  21. POSITIVE SKIN TEST CONTROL ? HISTAMINE [Concomitant]
     Active Substance: HISTAMINE
     Route: 023
  22. PLACEBO [Concomitant]
     Active Substance: UNSPECIFIED INGREDIENT
     Route: 023
  23. EPINEPHRINE. [Concomitant]
     Active Substance: EPINEPHRINE
     Route: 030
     Dates: start: 20140908
  24. STANDARDIZED CAT HAIR [Concomitant]
     Active Substance: FELIS CATUS HAIR
     Route: 023
  25. DOG EPITHELIUM [Concomitant]
     Active Substance: CANIS LUPUS FAMILIARIS SKIN
     Route: 023
  26. EASTERN OAK MIX [Concomitant]
     Active Substance: QUERCUS ALBA POLLEN\QUERCUS RUBRA POLLEN\QUERCUS VELUTINA POLLEN
     Route: 023
  27. POLLENS ? TREES, CEDAR, RED JUNIPERUS VIRGINIANA [Concomitant]
     Active Substance: JUNIPERUS VIRGINIANA POLLEN
     Route: 023
  28. NUTRAMETRIX [Concomitant]
     Route: 048
     Dates: start: 201501
  29. COMMON MUGWORT POLLEN [Suspect]
     Active Substance: ARTEMISIA VULGARIS POLLEN
     Route: 023
  30. FLONASE [Concomitant]
     Active Substance: FLUTICASONE PROPIONATE
     Route: 045
     Dates: start: 20140908, end: 20170103
  31. ADVIL [Concomitant]
     Active Substance: IBUPROFEN
     Route: 048
     Dates: start: 200104

REACTIONS (1)
  - Dermatitis allergic [Recovered/Resolved]

NARRATIVE: CASE EVENT DATE: 20161213
